FAERS Safety Report 21164029 (Version 4)
Quarter: 2022Q4

REPORT INFORMATION
  Report Type: Report from Study
  Country: US (occurrence: US)
  Receive Date: 20220803
  Receipt Date: 20221026
  Transmission Date: 20230113
  Serious: Yes (Hospitalization)
  Sender: FDA-Public Use
  Company Number: US-BIOGEN-2022BI01143259

PATIENT
  Age: 70 Year
  Sex: Female

DRUGS (1)
  1. TYSABRI [Suspect]
     Active Substance: NATALIZUMAB
     Indication: Multiple sclerosis
     Route: 050
     Dates: start: 20150115

REACTIONS (7)
  - Acute kidney injury [Unknown]
  - Septic shock [Unknown]
  - Sepsis [Unknown]
  - Hypercalcaemia [Unknown]
  - Dehydration [Unknown]
  - Infection [Unknown]
  - Hypertension [Unknown]

NARRATIVE: CASE EVENT DATE: 20220701
